FAERS Safety Report 7767864-5 (Version None)
Quarter: 2011Q3

REPORT INFORMATION
  Report Type: 
  Country: None (occurrence: None)
  Receive Date: 20110922
  Receipt Date: 20100924
  Transmission Date: 20111222
  Serious: No
  Sender: FDA-Public Use
  Company Number: US-ASTRAZENECA-2010SE45404

PATIENT
  Sex: Female

DRUGS (2)
  1. SEROQUEL [Suspect]
     Route: 048
  2. SEROQUEL [Suspect]
     Route: 048

REACTIONS (6)
  - PANIC ATTACK [None]
  - DRUG DOSE OMISSION [None]
  - EMOTIONAL DISORDER [None]
  - DISTURBANCE IN SOCIAL BEHAVIOUR [None]
  - ANXIETY [None]
  - IMPAIRED DRIVING ABILITY [None]
